FAERS Safety Report 8129604-X (Version None)
Quarter: 2012Q1

REPORT INFORMATION
  Report Type: 
  Country: None (occurrence: None)
  Receive Date: 20120210
  Receipt Date: 20120206
  Transmission Date: 20120608
  Serious: Yes (Hospitalization)
  Sender: FDA-Public Use
  Company Number: US-GLAXOSMITHKLINE-A0965382A

PATIENT
  Age: 87 Year
  Sex: Female

DRUGS (16)
  1. ZOMETA [Suspect]
     Indication: PRODUCT USED FOR UNKNOWN INDICATION
  2. NEXIUM [Concomitant]
     Dosage: 40MG TWICE PER DAY
     Route: 065
  3. AMLODIPINE BESYLATE [Concomitant]
     Dosage: 2.5MG TWICE PER DAY
     Route: 048
  4. LORTAB [Concomitant]
     Indication: PAIN
     Route: 048
  5. PREDNISONE [Concomitant]
     Dosage: 100MG SEE DOSAGE TEXT
     Route: 048
  6. ALKERAN [Suspect]
     Indication: MULTIPLE MYELOMA
     Dosage: 12MG PER DAY
     Route: 048
  7. EVISTA [Concomitant]
     Dosage: 60MG PER DAY
     Route: 048
  8. PROMETHAZINE [Concomitant]
     Indication: NAUSEA
     Dosage: 25MG SEE DOSAGE TEXT
     Route: 048
  9. ZOFRAN [Concomitant]
     Indication: NAUSEA
     Dosage: 4MG SEE DOSAGE TEXT
     Route: 048
  10. METOCLOPRAMIDE [Concomitant]
     Dosage: 25MG TWICE PER DAY
     Route: 048
  11. AMBIEN [Concomitant]
     Dosage: 10MG AT NIGHT
     Route: 048
  12. REVLIMID [Suspect]
     Indication: MULTIPLE MYELOMA
     Dosage: 10MG SEE DOSAGE TEXT
     Route: 048
     Dates: start: 20110829
  13. XANAX [Concomitant]
     Route: 048
  14. ROBAXIN [Concomitant]
     Dosage: 1500U SEE DOSAGE TEXT
     Route: 048
  15. PRAVASTATIN [Concomitant]
     Dosage: 20MG AT NIGHT
     Route: 048
  16. NYSTATIN [Concomitant]
     Dosage: 5ML SEE DOSAGE TEXT
     Route: 048

REACTIONS (3)
  - BLOOD CALCIUM DECREASED [None]
  - DIARRHOEA [None]
  - PLATELET COUNT DECREASED [None]
